FAERS Safety Report 8597751-4 (Version None)
Quarter: 2012Q3

REPORT INFORMATION
  Report Type: 
  Country: None (occurrence: None)
  Receive Date: 20120816
  Receipt Date: 20120810
  Transmission Date: 20120928
  Serious: Yes (Other)
  Sender: FDA-Public Use
  Company Number: PHHY2011CA39204

PATIENT
  Sex: Male

DRUGS (3)
  1. AFINITOR [Suspect]
     Indication: NEUROENDOCRINE TUMOUR
     Dosage: 10 MG, QD
     Route: 048
     Dates: start: 20110411, end: 20110502
  2. SANDOSTATIN LAR [Suspect]
     Indication: NEUROENDOCRINE TUMOUR
     Dosage: 30 MG EVERY 4 WEEKS
     Route: 030
     Dates: start: 20100610
  3. AFINITOR [Suspect]
     Dosage: 10 MG DAILY
     Route: 048
     Dates: start: 20110524

REACTIONS (14)
  - HEART RATE IRREGULAR [None]
  - EMOTIONAL DISORDER [None]
  - PLATELET COUNT DECREASED [None]
  - RASH MACULAR [None]
  - BLOOD PRESSURE INCREASED [None]
  - FATIGUE [None]
  - SOMNOLENCE [None]
  - STOMATITIS [None]
  - RASH GENERALISED [None]
  - DIARRHOEA [None]
  - WEIGHT DECREASED [None]
  - DECREASED APPETITE [None]
  - DEPRESSION [None]
  - BLOOD GLUCOSE INCREASED [None]
